FAERS Safety Report 21404526 (Version 2)
Quarter: 2022Q4

REPORT INFORMATION
  Report Type: Report from Study
  Country: CN (occurrence: CN)
  Receive Date: 20221003
  Receipt Date: 20221206
  Transmission Date: 20230112
  Serious: Yes (Hospitalization)
  Sender: FDA-Public Use
  Company Number: CN-JNJFOC-20211140913

PATIENT
  Age: 68 Year
  Sex: Female
  Weight: 59.5 kg

DRUGS (13)
  1. AMIVANTAMAB [Suspect]
     Active Substance: AMIVANTAMAB
     Indication: Non-small cell lung cancer metastatic
     Dosage: 350 MG
     Route: 042
     Dates: start: 20210712, end: 20210712
  2. AMIVANTAMAB [Suspect]
     Active Substance: AMIVANTAMAB
     Route: 042
     Dates: start: 20210713, end: 20210713
  3. AMIVANTAMAB [Suspect]
     Active Substance: AMIVANTAMAB
     Dosage: 19-JUL-2021, 26-JUL-2021, 02-AUG-2021, 09-AUG-2021, 23-AUG-2021, 06-SEP-2021, 20-SEP-2021, 02-OCT-20
     Route: 042
     Dates: start: 20210719
  4. AMIVANTAMAB [Suspect]
     Active Substance: AMIVANTAMAB
     Dosage: DUE TO AE RASH REDUCED AMIVANTAMAB DOSE TO 700 MG
     Route: 042
     Dates: start: 20220221
  5. DESONIDE [Concomitant]
     Active Substance: DESONIDE
     Indication: Rash
     Route: 061
     Dates: start: 20210719
  6. METHYLCOBALAMIN [Concomitant]
     Active Substance: METHYLCOBALAMIN
     Indication: Stomatitis
     Route: 048
     Dates: start: 20210803
  7. VITAMIN B6 [Concomitant]
     Active Substance: PYRIDOXINE HYDROCHLORIDE
     Indication: Stomatitis
     Route: 048
     Dates: start: 20210803
  8. HALOMETASONE [Concomitant]
     Active Substance: HALOMETASONE
     Indication: Paronychia
     Route: 061
     Dates: start: 20211002
  9. MUPIROCIN [Concomitant]
     Active Substance: MUPIROCIN
     Indication: Rash
     Route: 050
     Dates: start: 20211103, end: 20220812
  10. MUPIROCIN [Concomitant]
     Active Substance: MUPIROCIN
     Indication: Paronychia
  11. MUPIROCIN [Concomitant]
     Active Substance: MUPIROCIN
     Indication: Decubitus ulcer
  12. PHOSPHOLIPID [Concomitant]
     Active Substance: PHOSPHOLIPID
     Indication: Prophylaxis
     Route: 048
     Dates: start: 20211103, end: 20211108
  13. MINOCYCLINE HYDROCHLORIDE [Concomitant]
     Active Substance: MINOCYCLINE HYDROCHLORIDE
     Indication: Prophylaxis
     Route: 048
     Dates: start: 20210526

REACTIONS (1)
  - Venous thrombosis [Recovering/Resolving]

NARRATIVE: CASE EVENT DATE: 20211116
